FAERS Safety Report 13618373 (Version 1)
Quarter: 2017Q2

REPORT INFORMATION
  Report Type: Spontaneous
  Country: US (occurrence: US)
  Receive Date: 20170606
  Receipt Date: 20170606
  Transmission Date: 20170830
  Serious: No
  Sender: FDA-Public Use
  Company Number: US-JNJFOC-20170416415

PATIENT
  Sex: Male
  Weight: 65.32 kg

DRUGS (15)
  1. FLUVASTATIN [Concomitant]
     Active Substance: FLUVASTATIN SODIUM
     Route: 065
  2. COQ10 [Concomitant]
     Active Substance: UBIDECARENONE
     Route: 065
  3. ERYTHROMYCIN. [Concomitant]
     Active Substance: ERYTHROMYCIN
     Route: 065
  4. WARFARIN [Concomitant]
     Active Substance: WARFARIN
     Route: 065
  5. TAMSULOSIN [Concomitant]
     Active Substance: TAMSULOSIN
     Route: 065
  6. ASPIRIN. [Concomitant]
     Active Substance: ASPIRIN
     Route: 065
  7. CARVEDILOL. [Concomitant]
     Active Substance: CARVEDILOL
     Route: 065
  8. LISINOPRIL. [Concomitant]
     Active Substance: LISINOPRIL
     Route: 065
  9. PILOCARPINE. [Concomitant]
     Active Substance: PILOCARPINE
     Route: 065
  10. IMODIUM A-D [Suspect]
     Active Substance: LOPERAMIDE HYDROCHLORIDE
     Indication: DIARRHOEA
     Route: 048
     Dates: start: 201702, end: 20170412
  11. IMODIUM A-D [Suspect]
     Active Substance: LOPERAMIDE HYDROCHLORIDE
     Indication: DIARRHOEA
     Dosage: IN FEBRUARY
     Route: 048
     Dates: start: 201702
  12. FUROSEMIDE. [Concomitant]
     Active Substance: FUROSEMIDE
     Route: 065
  13. IMODIUM A-D [Suspect]
     Active Substance: LOPERAMIDE HYDROCHLORIDE
     Indication: ANTIDIARRHOEAL SUPPORTIVE CARE
     Route: 048
     Dates: start: 201702, end: 20170412
  14. IMODIUM A-D [Suspect]
     Active Substance: LOPERAMIDE HYDROCHLORIDE
     Indication: ANTIDIARRHOEAL SUPPORTIVE CARE
     Dosage: IN FEBRUARY
     Route: 048
     Dates: start: 201702
  15. SYSTANE (HYPROMELLOSE 2910 (4000 MPA.S)) [Concomitant]
     Active Substance: HYPROMELLOSE 2910 (4000 MPA.S)
     Route: 065

REACTIONS (1)
  - Inappropriate schedule of drug administration [Unknown]
